FAERS Safety Report 18314876 (Version 1)
Quarter: 2020Q3

REPORT INFORMATION
  Report Type: Spontaneous
  Country: US (occurrence: US)
  Receive Date: 20200926
  Receipt Date: 20200926
  Transmission Date: 20201103
  Serious: Yes (Hospitalization, Other)
  Sender: FDA-Public Use
  Company Number: US-ACCORD-202357

PATIENT
  Age: 28 Year
  Sex: Female

DRUGS (2)
  1. LEVETIRACETAM. [Suspect]
     Active Substance: LEVETIRACETAM
     Indication: SEIZURE
     Dosage: TWICE DAILY
     Route: 048
  2. RISPERDAL [Concomitant]
     Active Substance: RISPERIDONE
     Dosage: TWICE DAILY
     Route: 048

REACTIONS (6)
  - Aggression [Recovered/Resolved]
  - Anxiety [Recovered/Resolved]
  - Suicidal ideation [Recovered/Resolved]
  - Hostility [Recovered/Resolved]
  - Abnormal behaviour [Recovered/Resolved]
  - Paranoia [Recovered/Resolved]
